FAERS Safety Report 8113229-6 (Version None)
Quarter: 2012Q1

REPORT INFORMATION
  Report Type: 
  Country: None (occurrence: None)
  Receive Date: 20120203
  Receipt Date: 20120130
  Transmission Date: 20120608
  Serious: Yes (Other)
  Sender: FDA-Public Use
  Company Number: US-PFIZER INC-2012006953

PATIENT
  Sex: Female
  Weight: 63.492 kg

DRUGS (6)
  1. ALPRAZOLAM [Suspect]
     Indication: STRESS
     Dosage: UNK, 2X/DAY (SPLITTING 0.25 MG TABLET)
     Route: 048
  2. RANITIDINE [Concomitant]
     Indication: DYSPEPSIA
     Dosage: 150 MG, AS NEEDED
  3. IBUPROFEN [Concomitant]
     Indication: MYALGIA
  4. PROZAC [Concomitant]
     Indication: DEPRESSION
     Dosage: 20 MG, ALTERNATE DAY
  5. IBUPROFEN [Concomitant]
     Indication: HEADACHE
     Dosage: 400 MG, AS NEEDED
  6. XANAX [Suspect]
     Dosage: UNK

REACTIONS (1)
  - HYPOTHYROIDISM [None]
